FAERS Safety Report 10163735 (Version 2)
Quarter: 2014Q2

REPORT INFORMATION
  Report Type: Spontaneous
  Country: GB (occurrence: GB)
  Receive Date: 20140509
  Receipt Date: 20140509
  Transmission Date: 20141212
  Serious: Yes (Other)
  Sender: FDA-Public Use
  Company Number: GB-TEVA-475806ISR

PATIENT
  Age: 30 Year
  Sex: Female

DRUGS (2)
  1. COPAXONE [Suspect]
     Indication: MULTIPLE SCLEROSIS
     Dosage: 20 MG/ML DAILY; ON COPAXONE FOR APPROXIMATELY 4 MONTHS
     Route: 058
     Dates: start: 20131202
  2. INSULIN [Concomitant]
     Indication: DIABETES MELLITUS
     Dosage: VARIABLE
     Route: 058

REACTIONS (2)
  - Blood glucose fluctuation [Not Recovered/Not Resolved]
  - Hypoglycaemia [Unknown]
